FAERS Safety Report 11145816 (Version 1)
Quarter: 2015Q2

REPORT INFORMATION
  Report Type: Spontaneous
  Country: US (occurrence: US)
  Receive Date: 20150528
  Receipt Date: 20150528
  Transmission Date: 20150821
  Serious: No
  Sender: FDA-Public Use
  Company Number: US-PFIZER INC-2015177340

PATIENT
  Sex: Male

DRUGS (1)
  1. LYRICA [Suspect]
     Active Substance: PREGABALIN
     Dosage: 10 MG, UNK

REACTIONS (6)
  - Headache [Unknown]
  - Drug prescribing error [Unknown]
  - Chest pain [Unknown]
  - Irritability [Unknown]
  - Abnormal behaviour [Unknown]
  - Fatigue [Unknown]
